FAERS Safety Report 11588893 (Version 1)
Quarter: 2015Q4

REPORT INFORMATION
  Report Type: Spontaneous
  Country: BR (occurrence: BR)
  Receive Date: 20151002
  Receipt Date: 20151002
  Transmission Date: 20160304
  Serious: Yes (Other)
  Sender: FDA-Public Use
  Company Number: CHPA2015BR011429

PATIENT
  Sex: Female

DRUGS (2)
  1. OTRIVINA [Suspect]
     Active Substance: XYLOMETAZOLINE
     Indication: NASAL CONGESTION
     Dosage: UNK
     Route: 065
  2. OTRIVINA [Suspect]
     Active Substance: XYLOMETAZOLINE
     Indication: DYSPNOEA

REACTIONS (3)
  - Drug dependence [Unknown]
  - Rhinitis [Unknown]
  - Nasal congestion [Unknown]
